FAERS Safety Report 5792530-5 (Version None)
Quarter: 2008Q2

REPORT INFORMATION
  Report Type: 
  Country: None (occurrence: None)
  Receive Date: 20080626
  Receipt Date: 20080617
  Transmission Date: 20081010
  Serious: Yes (Death, Hospitalization)
  Sender: FDA-Public Use
  Company Number: FR-AMGEN-US275531

PATIENT
  Sex: Female
  Weight: 60 kg

DRUGS (8)
  1. ENBREL [Suspect]
     Indication: RHEUMATOID ARTHRITIS
     Route: 058
     Dates: start: 20071101, end: 20080314
  2. METOJECT [Suspect]
     Indication: RHEUMATOID ARTHRITIS
     Route: 058
     Dates: start: 19950101, end: 20080313
  3. CORTANCYL [Suspect]
     Indication: RHEUMATOID ARTHRITIS
     Route: 048
     Dates: start: 19800101
  4. FOLIC ACID [Concomitant]
     Route: 048
  5. PLAVIX [Concomitant]
     Route: 048
  6. RAMIPRIL [Concomitant]
     Route: 048
  7. OGAST [Concomitant]
  8. SOTALOL HCL [Concomitant]
     Route: 048

REACTIONS (6)
  - CARDIAC ARREST [None]
  - METABOLIC ACIDOSIS [None]
  - PNEUMOCYSTIS JIROVECI PNEUMONIA [None]
  - PROTHROMBIN TIME PROLONGED [None]
  - PULMONARY ARTERIAL HYPERTENSION [None]
  - RESPIRATORY DISTRESS [None]
